FAERS Safety Report 5160514-6 (Version None)
Quarter: 2006Q4

REPORT INFORMATION
  Report Type: 
  Country: None (occurrence: None)
  Receive Date: 20061129
  Receipt Date: 20061121
  Transmission Date: 20070319
  Serious: Yes (Hospitalization)
  Sender: FDA-Public Use
  Company Number: US-ROXANE LABORATORIES, INC-2006-DE-06185GD

PATIENT
  Age: 37 Year
  Sex: Female

DRUGS (12)
  1. CALCIUM CARBONATE [Suspect]
     Route: 048
  2. ERGOCALCIFEROL [Suspect]
  3. FUROSEMIDE [Suspect]
  4. METOLAZONE [Suspect]
  5. PREDNISONE TAB [Concomitant]
  6. GLIPIZIDE [Concomitant]
  7. NIACIN [Concomitant]
  8. SIMVASTATIN [Concomitant]
  9. DOXAZOSIN MESYLATE [Concomitant]
  10. PHENOBARBITAL TAB [Concomitant]
  11. ALENDRONATE SODIUM [Concomitant]
  12. MULTI-VITAMIN [Concomitant]

REACTIONS (3)
  - HYPOCALCAEMIA [None]
  - HYPOMAGNESAEMIA [None]
  - MILK-ALKALI SYNDROME [None]
